FAERS Safety Report 10015469 (Version 3)
Quarter: 2014Q2

REPORT INFORMATION
  Report Type: Report from Study
  Country: US (occurrence: US)
  Receive Date: 20140317
  Receipt Date: 20140507
  Transmission Date: 20141212
  Serious: Yes (Life-Threatening, Hospitalization, Other)
  Sender: FDA-Public Use
  Company Number: US-GILEAD-2014-0096735

PATIENT
  Age: 54 Year
  Sex: Male
  Weight: 61.22 kg

DRUGS (9)
  1. ELVITEGRAVIR/EMTRICITABINE/TENOFOVIR DF/COBICISTAT [Suspect]
     Indication: HIV INFECTION
     Dosage: 1 DF, QD
     Route: 048
     Dates: start: 20140220, end: 20140306
  2. ELVITEGRAVIR/EMTRICITABINE/TENOFOVIR DF/COBICISTAT [Suspect]
     Dosage: 1 DF, QD
     Route: 048
     Dates: start: 20140313
  3. COMPLERA [Concomitant]
     Indication: HIV INFECTION
     Dosage: UNK
     Dates: start: 20131122, end: 20140220
  4. SULFASALAZINE [Concomitant]
     Dosage: UNK
  5. VENLAFAXINE [Concomitant]
     Dosage: UNK
  6. ENALAPRIL [Concomitant]
     Dosage: UNK
  7. GABAPENTIN [Concomitant]
     Dosage: UNK
  8. FLOMAX                             /01280302/ [Concomitant]
     Dosage: UNK
  9. BACTRIM [Concomitant]
     Dosage: UNK

REACTIONS (3)
  - Cholecystitis [Recovered/Resolved]
  - Sepsis [Recovered/Resolved]
  - Renal failure acute [Recovered/Resolved]
